FAERS Safety Report 6491876-5 (Version None)
Quarter: 2009Q4

REPORT INFORMATION
  Report Type: 
  Country: None (occurrence: None)
  Receive Date: 20091208
  Receipt Date: 20091125
  Transmission Date: 20100525
  Serious: Yes (Hospitalization)
  Sender: FDA-Public Use
  Company Number: 1-20889950

PATIENT
  Age: 78 Year
  Sex: Female

DRUGS (1)
  1. FENTANYL-50 [Suspect]
     Indication: PAIN
     Dosage: 50 MCG/HR EVERY 72 HR, TRANSDERMAL
     Route: 062

REACTIONS (3)
  - FALL [None]
  - MYDRIASIS [None]
  - SEDATION [None]
